FAERS Safety Report 7611943-X (Version None)
Quarter: 2011Q3

REPORT INFORMATION
  Report Type: 
  Country: None (occurrence: None)
  Receive Date: 20110715
  Receipt Date: 20110708
  Transmission Date: 20111222
  Serious: Yes (Other)
  Sender: FDA-Public Use
  Company Number: IN-EISAI INC-E2020-09426-SPO-IN

PATIENT
  Age: 74 Year
  Sex: Female

DRUGS (12)
  1. ROCURONIUM BROMIDE [Interacting]
     Route: 042
  2. ISOFLURANE [Concomitant]
     Dosage: UNKNOWN
  3. MORPHINE [Concomitant]
     Route: 042
  4. PROPOFOL [Concomitant]
     Route: 042
  5. ROCURONIUM BROMIDE [Interacting]
     Route: 042
  6. ROCURONIUM BROMIDE [Interacting]
     Dosage: UNKNOWN
     Route: 042
  7. GLIMEPIRIDE [Concomitant]
     Route: 048
  8. ARICEPT [Suspect]
     Route: 048
  9. VECURONIUM BROMIDE [Interacting]
     Dosage: UNKNOWN
     Route: 042
  10. PROPOFOL [Concomitant]
     Route: 042
  11. PROPOFOL [Concomitant]
     Route: 042
  12. METFORMIN HCL [Concomitant]
     Route: 048

REACTIONS (2)
  - HYPERTONIA [None]
  - NEUROMUSCULAR BLOCK PROLONGED [None]
